FAERS Safety Report 16299811 (Version 2)
Quarter: 2020Q4

REPORT INFORMATION
  Report Type: Spontaneous
  Country: US (occurrence: US)
  Receive Date: 20190510
  Receipt Date: 20201224
  Transmission Date: 20210113
  Serious: Yes (Hospitalization, Other)
  Sender: FDA-Public Use
  Company Number: US-ASTRAZENECA-2019SE66104

PATIENT
  Age: 20708 Day
  Sex: Female
  Weight: 95.7 kg

DRUGS (67)
  1. NEXIUM [Suspect]
     Active Substance: ESOMEPRAZOLE MAGNESIUM
     Indication: GASTROOESOPHAGEAL REFLUX DISEASE
     Route: 065
     Dates: start: 20150101, end: 20151231
  2. NEXIUM 24HR [Suspect]
     Active Substance: ESOMEPRAZOLE MAGNESIUM
     Indication: GASTROOESOPHAGEAL REFLUX DISEASE
     Route: 048
     Dates: start: 20140101, end: 20141231
  3. CELECOXIB. [Concomitant]
     Active Substance: CELECOXIB
     Indication: PAIN
     Dates: start: 2010
  4. ATORVASTATIN [Concomitant]
     Active Substance: ATORVASTATIN
     Indication: HYPERLIPIDAEMIA
     Dates: start: 2010
  5. ASPIRIN. [Concomitant]
     Active Substance: ASPIRIN
     Indication: ANTICOAGULANT THERAPY
     Dates: start: 2013
  6. MONTELUKAST [Concomitant]
     Active Substance: MONTELUKAST SODIUM
  7. MELOXICAM. [Concomitant]
     Active Substance: MELOXICAM
  8. GABAPENTIN. [Concomitant]
     Active Substance: GABAPENTIN
  9. AMOXICILLIN. [Concomitant]
     Active Substance: AMOXICILLIN
  10. ONDANSETRON [Concomitant]
     Active Substance: ONDANSETRON
  11. NEOSTIGMINE. [Concomitant]
     Active Substance: NEOSTIGMINE METHYLSULFATE
  12. KETAMINE [Concomitant]
     Active Substance: KETAMINE
  13. BRIMONIDINE [Concomitant]
     Active Substance: BRIMONIDINE TARTRATE
  14. FLUTICASONE. [Concomitant]
     Active Substance: FLUTICASONE
  15. LYRICA [Concomitant]
     Active Substance: PREGABALIN
  16. VIGAMOX [Concomitant]
     Active Substance: MOXIFLOXACIN HYDROCHLORIDE
  17. SULFACETAMIDE. [Concomitant]
     Active Substance: SULFACETAMIDE
  18. METRONIDAZOLE. [Concomitant]
     Active Substance: METRONIDAZOLE
  19. BREO ELLIPTA [Concomitant]
     Active Substance: FLUTICASONE FUROATE\VILANTEROL TRIFENATATE
  20. AMOX-CLAV [Concomitant]
     Active Substance: AMOXICILLIN\CLAVULANATE POTASSIUM
  21. DIAZEPAM. [Concomitant]
     Active Substance: DIAZEPAM
  22. PROPOFOL. [Concomitant]
     Active Substance: PROPOFOL
  23. PHENYLEPHRINE [Concomitant]
     Active Substance: PHENYLEPHRINE HYDROCHLORIDE
  24. VITAMIN B12 [Concomitant]
     Active Substance: CYANOCOBALAMIN
     Indication: SUPPLEMENTATION THERAPY
     Dates: start: 2011
  25. VENTOLIN HFA [Concomitant]
     Active Substance: ALBUTEROL SULFATE
  26. ZOLPIDEM [Concomitant]
     Active Substance: ZOLPIDEM TARTRATE
  27. BUPROPION. [Concomitant]
     Active Substance: BUPROPION
  28. TRAMADOL. [Concomitant]
     Active Substance: TRAMADOL
  29. ESCITALOPRAM [Concomitant]
     Active Substance: ESCITALOPRAM OXALATE
  30. HYDROCODONE BITARTRATE AND ACETAMINOPHEN [Concomitant]
     Active Substance: ACETAMINOPHEN\HYDROCODONE BITARTRATE
  31. OXYCODONE [Concomitant]
     Active Substance: OXYCODONE
  32. ETODOLAC. [Concomitant]
     Active Substance: ETODOLAC
  33. POLYETHYLENE GLYCOL [Concomitant]
     Active Substance: POLYETHYLENE GLYCOLS
  34. DEXAMETHASONE. [Concomitant]
     Active Substance: DEXAMETHASONE
  35. NEXIUM [Suspect]
     Active Substance: ESOMEPRAZOLE MAGNESIUM
     Indication: GASTROOESOPHAGEAL REFLUX DISEASE
     Route: 048
     Dates: start: 2007, end: 2014
  36. LEVAQUIN [Concomitant]
     Active Substance: LEVOFLOXACIN
     Indication: SINUSITIS
     Dates: end: 1998
  37. VITAMIN D3 [Concomitant]
     Active Substance: CHOLECALCIFEROL
     Indication: SUPPLEMENTATION THERAPY
     Dates: start: 2015
  38. TUMS [Concomitant]
     Active Substance: CALCIUM CARBONATE
     Dosage: 500 MG AS NEEDED
     Dates: start: 1994
  39. PREDNISONE. [Concomitant]
     Active Substance: PREDNISONE
  40. ALBUTEROL HFA [Concomitant]
     Active Substance: ALBUTEROL SULFATE
  41. LIALDA [Concomitant]
     Active Substance: MESALAMINE
  42. SENNA [Concomitant]
     Active Substance: SENNA LEAF\SENNOSIDES\SENNOSIDES A AND B
  43. OLOPATADINE. [Concomitant]
     Active Substance: OLOPATADINE
  44. FENTANYL. [Concomitant]
     Active Substance: FENTANYL
  45. PANTOPRAZOLE [Suspect]
     Active Substance: PANTOPRAZOLE
     Indication: GASTROOESOPHAGEAL REFLUX DISEASE
     Route: 065
     Dates: start: 2015
  46. LORAZEPAM. [Concomitant]
     Active Substance: LORAZEPAM
  47. LUMIGAN [Concomitant]
     Active Substance: BIMATOPROST
  48. DAPTOMYCIN. [Concomitant]
     Active Substance: DAPTOMYCIN
  49. RIFAMPIN. [Concomitant]
     Active Substance: RIFAMPIN
  50. NEXIUM [Suspect]
     Active Substance: ESOMEPRAZOLE MAGNESIUM
     Indication: GASTROOESOPHAGEAL REFLUX DISEASE
     Route: 048
     Dates: start: 200102, end: 201512
  51. ZITHROMAX [Concomitant]
     Active Substance: AZITHROMYCIN DIHYDRATE
     Indication: SINUSITIS
     Dates: end: 1998
  52. MULTIVITAMINS [Concomitant]
     Active Substance: VITAMINS
     Indication: SUPPLEMENTATION THERAPY
     Dates: start: 1976
  53. CITALOPRAM [Concomitant]
     Active Substance: CITALOPRAM HYDROBROMIDE
  54. IPRATROPIUM [Concomitant]
     Active Substance: IPRATROPIUM
  55. CLOPIDOGREL [Concomitant]
     Active Substance: CLOPIDOGREL BISULFATE
  56. DOXYCYCLINE HYCLATE. [Concomitant]
     Active Substance: DOXYCYCLINE HYCLATE
  57. FLUVIRIN NOS [Concomitant]
     Active Substance: INFLUENZA VIRUS VACCINE
  58. TRIFLURIDINE. [Concomitant]
     Active Substance: TRIFLURIDINE
  59. ZYRTEC [Concomitant]
     Active Substance: CETIRIZINE HYDROCHLORIDE
  60. FERROUS SULFATE. [Concomitant]
     Active Substance: FERROUS SULFATE
  61. FISH OIL [Concomitant]
     Active Substance: FISH OIL
     Indication: GLAUCOMA
     Dates: start: 2008
  62. ZANTAC [Concomitant]
     Active Substance: RANITIDINE HYDROCHLORIDE
     Dates: start: 20010101, end: 20011231
  63. OSELTAMIVIR [Concomitant]
     Active Substance: OSELTAMIVIR
  64. MUPIROCIN. [Concomitant]
     Active Substance: MUPIROCIN
  65. DICLOFENAC SODIUM. [Concomitant]
     Active Substance: DICLOFENAC SODIUM
  66. ALPHAGAN P [Concomitant]
     Active Substance: BRIMONIDINE TARTRATE
  67. METHYLPREDNISOLONE. [Concomitant]
     Active Substance: METHYLPREDNISOLONE

REACTIONS (4)
  - Chronic kidney disease [Unknown]
  - Renal failure [Unknown]
  - Gastrooesophageal reflux disease [Not Recovered/Not Resolved]
  - Acute kidney injury [Recovered/Resolved]

NARRATIVE: CASE EVENT DATE: 20141022
